FAERS Safety Report 8380926-7 (Version None)
Quarter: 2012Q1

REPORT INFORMATION
  Report Type: 
  Country: None (occurrence: None)
  Receive Date: 20120323
  Receipt Date: 20110224
  Transmission Date: 20120608
  Serious: Yes (Other)
  Sender: FDA-Public Use
  Company Number: 163-21880-11023161

PATIENT
  Age: 74 Year
  Sex: Female

DRUGS (1)
  1. REVLIMID [Suspect]
     Indication: MYELODYSPLASTIC SYNDROME
     Dosage: 10 MG, ONCE A DAY FOR 21 DAYS, 7 DAYS OFF, PO
     Route: 047
     Dates: start: 20101230, end: 20110214

REACTIONS (3)
  - FULL BLOOD COUNT DECREASED [None]
  - MYALGIA [None]
  - SWELLING FACE [None]
